FAERS Safety Report 19448416 (Version 3)
Quarter: 2021Q3

REPORT INFORMATION
  Report Type: Report from Study
  Country: IT (occurrence: IT)
  Receive Date: 20210622
  Receipt Date: 20210723
  Transmission Date: 20211014
  Serious: Yes (Hospitalization)
  Sender: FDA-Public Use
  Company Number: IT-KARYOPHARM THERAPEUTICS, INC.-2021KPT000801

PATIENT
  Age: 77 Year
  Sex: Male
  Weight: 90 kg

DRUGS (32)
  1. SELINEXOR [Suspect]
     Active Substance: SELINEXOR
     Dosage: 40 MG, ON DAYS 1 AND 8 OF 21?DAY CYCLE
     Route: 048
     Dates: start: 20210504
  2. LASIX [Concomitant]
     Active Substance: FUROSEMIDE
     Indication: HYPERTENSION
     Dosage: 25 MG, QD
     Route: 048
  3. METFORAL [Concomitant]
     Active Substance: METFORMIN HYDROCHLORIDE
     Indication: DIABETES MELLITUS
     Dosage: 850 MG, QD
     Route: 048
     Dates: start: 202104, end: 20210523
  4. G?CSF [Concomitant]
     Active Substance: GRANULOCYTE COLONY-STIMULATING FACTOR NOS
     Indication: PANCYTOPENIA
     Dosage: UNK
     Route: 058
     Dates: start: 20210507, end: 20210517
  5. RITUXIMAB. [Suspect]
     Active Substance: RITUXIMAB
     Indication: DIFFUSE LARGE B-CELL LYMPHOMA
     Dosage: 375 MG/M2, 1X/3 WEEKS
     Route: 042
     Dates: start: 20210426
  6. EMEND [Concomitant]
     Active Substance: APREPITANT
     Dosage: 80 MG, QD
     Route: 048
     Dates: start: 20210602, end: 20210603
  7. CLEXANE [Concomitant]
     Active Substance: ENOXAPARIN SODIUM
     Indication: AXILLARY VEIN THROMBOSIS
     Dosage: 8000 IU, BID
     Route: 058
     Dates: start: 20210518
  8. ONDANSETRON [Concomitant]
     Active Substance: ONDANSETRON
     Indication: NAUSEA
     Dosage: 4 MG, QD
     Route: 048
     Dates: start: 20210504, end: 20210523
  9. EMEND [Concomitant]
     Active Substance: APREPITANT
     Indication: PROPHYLAXIS
     Dosage: 125 MG, SINGLE
     Route: 048
     Dates: start: 20210601, end: 20210601
  10. KCL RETARD ZYMA [Concomitant]
     Active Substance: POTASSIUM CHLORIDE
     Indication: SUPPLEMENTATION THERAPY
     Dosage: 600 MG, QD
     Dates: start: 20210601
  11. LEVOFLOXACIN. [Concomitant]
     Active Substance: LEVOFLOXACIN
     Indication: PROPHYLAXIS
     Dosage: 500 MG, QD
     Route: 048
     Dates: start: 20210609, end: 20210613
  12. SELINEXOR [Suspect]
     Active Substance: SELINEXOR
     Indication: DIFFUSE LARGE B-CELL LYMPHOMA
     Dosage: 60 MG ON DAYS 1 AND 8 OF 21?DAY CYCLE
     Route: 048
     Dates: start: 20210426, end: 20210503
  13. CISPLATIN. [Suspect]
     Active Substance: CISPLATIN
     Indication: DIFFUSE LARGE B-CELL LYMPHOMA
     Dosage: 75 MG/M2, 1X/3 WEEKS
     Route: 042
     Dates: start: 20210426
  14. BLOPRESS [Concomitant]
     Active Substance: CANDESARTAN CILEXETIL
     Indication: HYPERTENSION
     Dosage: 8 MG, QD
     Route: 048
     Dates: end: 20210523
  15. PANTOPRAZOLE [Concomitant]
     Active Substance: PANTOPRAZOLE
     Indication: PROPHYLAXIS
     Dosage: 20 MG, QD
     Route: 048
     Dates: start: 20210428
  16. ZYLORIC [Concomitant]
     Active Substance: ALLOPURINOL
     Indication: PROPHYLAXIS
     Dosage: 300 MG, 2X/WEEK
     Route: 048
     Dates: start: 20210504
  17. ABASAGLAR [Concomitant]
     Active Substance: INSULIN GLARGINE
     Indication: DIABETES MELLITUS
     Dosage: 10 IU, QD
     Route: 058
     Dates: start: 20210601
  18. CALCIUM SANDOZ [CALCIUM CARBONATE] [Concomitant]
     Active Substance: CALCIUM CARBONATE
     Indication: HYPOCALCAEMIA
     Dosage: 500 MG, BID
     Route: 048
     Dates: start: 20210604
  19. CLEXANE [Concomitant]
     Active Substance: ENOXAPARIN SODIUM
     Indication: PROPHYLAXIS
     Dosage: 8000 IU, QD
     Route: 058
     Dates: start: 20210423, end: 20210517
  20. DEXAMETHASONE. [Suspect]
     Active Substance: DEXAMETHASONE
     Indication: DIFFUSE LARGE B-CELL LYMPHOMA
     Dosage: 10 MG, DAYS 1,2,3 AND 4 OF 21?DAY CYCLE
     Route: 048
     Dates: start: 20210426
  21. POTASSIUM CANRENOATE [Concomitant]
     Active Substance: CANRENOATE POTASSIUM
     Indication: HYPERTENSION
     Dosage: 50 MG, QD
     Route: 048
     Dates: end: 20210523
  22. FLUCONAZOLE. [Concomitant]
     Active Substance: FLUCONAZOLE
     Dosage: 200 MG, QD
     Route: 048
     Dates: start: 20120609, end: 20210613
  23. FILGRASTIM [Concomitant]
     Active Substance: FILGRASTIM
     Indication: PROPHYLAXIS
     Dosage: 30000 IU, QD
     Route: 058
     Dates: start: 20210609, end: 20210613
  24. BISOPROLOL [Concomitant]
     Active Substance: BISOPROLOL
     Indication: HYPERTENSION
     Dosage: 1.25 MG, BID
     Route: 048
  25. ACYCLOVIR [ACICLOVIR] [Concomitant]
     Active Substance: ACYCLOVIR
     Indication: PROPHYLAXIS
     Dosage: 400 MG, QD
     Route: 048
     Dates: start: 20210504
  26. NOVORAPID [Concomitant]
     Active Substance: INSULIN ASPART
     Indication: DIABETES MELLITUS
     Dosage: 4 IU, TID
     Route: 058
     Dates: start: 20210601
  27. GEMCITABINE. [Suspect]
     Active Substance: GEMCITABINE
     Indication: DIFFUSE LARGE B-CELL LYMPHOMA
     Dosage: 1000 MG/M2, DAYS 1 AND 8 OF 21 DAY CYCLE
     Route: 042
     Dates: start: 20210426
  28. DEXAMETHASONE. [Suspect]
     Active Substance: DEXAMETHASONE
     Dosage: 20 MG, DAYS 1,2,3 AND 4 OF 21?DAY CYCLE
     Route: 048
     Dates: start: 20210601
  29. TOTALIP [Concomitant]
     Active Substance: ATORVASTATIN
     Indication: BLOOD LACTATE DEHYDROGENASE INCREASED
     Dosage: 20 MG, QD
     Route: 048
     Dates: start: 2021
  30. LAEVOLAC [Concomitant]
     Active Substance: LACTULOSE
     Indication: CONSTIPATION
     Dosage: 1 SPOON, QD
     Route: 048
     Dates: start: 20210504, end: 20210523
  31. ERYTHROPOIETIN [Concomitant]
     Active Substance: ERYTHROPOIETIN
     Indication: PANCYTOPENIA
     Dosage: UNK
     Dates: start: 20210507, end: 20210517
  32. FLUCONAZOLE. [Concomitant]
     Active Substance: FLUCONAZOLE
     Indication: PROPHYLAXIS
     Dosage: 100 MG, QD
     Route: 048
     Dates: start: 20210518, end: 20210522

REACTIONS (2)
  - Neutropenia [Recovered/Resolved]
  - Thrombocytopenia [Recovered/Resolved]

NARRATIVE: CASE EVENT DATE: 20210610
